FAERS Safety Report 5235835-9 (Version None)
Quarter: 2007Q1

REPORT INFORMATION
  Report Type: 
  Country: None (occurrence: None)
  Receive Date: 20061208
  Receipt Date: 20060622
  Transmission Date: 20070707
  Serious: Yes (Other)
  Sender: FDA-Public Use
  Company Number: 2006UW13266

PATIENT
  Age: 64 Year
  Sex: Female
  Weight: 90.718 kg

DRUGS (3)
  1. CRESTOR [Suspect]
     Indication: BLOOD CHOLESTEROL INCREASED
     Dosage: 10 MG PO
     Route: 048
     Dates: start: 20060101
  2. NEXIUM [Concomitant]
  3. CELEBREX [Concomitant]

REACTIONS (4)
  - ALOPECIA [None]
  - ARTHRALGIA [None]
  - HEADACHE [None]
  - MYALGIA [None]
